FAERS Safety Report 10844248 (Version 1)
Quarter: 2015Q1

REPORT INFORMATION
  Report Type: Spontaneous
  Country: JP (occurrence: JP)
  Receive Date: 20150220
  Receipt Date: 20150220
  Transmission Date: 20150721
  Serious: Yes (Death)
  Sender: FDA-Public Use
  Company Number: JP-TEVA-536514ISR

PATIENT
  Age: 60 Year
  Sex: Female
  Weight: 45.3 kg

DRUGS (3)
  1. E-FEN BUCCAL [Suspect]
     Active Substance: FENTANYL CITRATE
     Indication: BREAKTHROUGH PAIN
     Dosage: 100 MICROGRAM DAILY;
     Route: 002
     Dates: start: 20150103, end: 20150103
  2. DUROTEP [Concomitant]
     Active Substance: FENTANYL
     Indication: BILE DUCT CANCER
     Dosage: 2.1 MILLIGRAM DAILY;
     Dates: start: 20141226
  3. MAGLAX [Concomitant]
     Active Substance: MAGNESIUM OXIDE
     Dosage: 1500 MILLIGRAM DAILY;
     Route: 048
     Dates: start: 20141228

REACTIONS (2)
  - Death [Fatal]
  - Palpitations [Recovered/Resolved]

NARRATIVE: CASE EVENT DATE: 20150103
